FAERS Safety Report 25765771 (Version 1)
Quarter: 2025Q3

REPORT INFORMATION
  Report Type: Spontaneous
  Country: US (occurrence: US)
  Receive Date: 20250905
  Receipt Date: 20250905
  Transmission Date: 20251020
  Serious: No
  Sender: DOMPE FARMACEUTICI
  Company Number: US-FARMAPROD-202407-2447

PATIENT
  Sex: Female

DRUGS (16)
  1. OXERVATE [Suspect]
     Active Substance: CENEGERMIN-BKBJ
     Indication: Neurotrophic keratopathy
     Route: 047
     Dates: start: 20240612
  2. VESICARE [Concomitant]
     Active Substance: SOLIFENACIN SUCCINATE
  3. VITAMIN B12 [Concomitant]
     Active Substance: CYANOCOBALAMIN
  4. ATORVASTATIN CALCIUM [Concomitant]
     Active Substance: ATORVASTATIN CALCIUM
  5. LISINOPRIL AND HYDROCHLOROTHIAZIDE [Concomitant]
     Active Substance: HYDROCHLOROTHIAZIDE\LISINOPRIL
  6. FLONASE ALLERGY RELIEF [Concomitant]
     Active Substance: FLUTICASONE PROPIONATE
  7. SOLIFENACIN SUCCINATE [Concomitant]
     Active Substance: SOLIFENACIN SUCCINATE
  8. CLARITIN [Concomitant]
     Active Substance: LORATADINE
  9. RHOPRESSA [Concomitant]
     Active Substance: NETARSUDIL MESYLATE
  10. CLEAR EYES MAX REDNESS RELIEF [Concomitant]
  11. MURO-128 [Concomitant]
  12. LUMIFY [Concomitant]
     Active Substance: BRIMONIDINE TARTRATE
  13. ALAWAY [Concomitant]
     Active Substance: KETOTIFEN FUMARATE
  14. ALBUTEROL SULFATE [Concomitant]
     Active Substance: ALBUTEROL SULFATE
  15. JARDIANCE [Concomitant]
     Active Substance: EMPAGLIFLOZIN
  16. one a day womens multi vitamin [Concomitant]

REACTIONS (1)
  - Eyelid pain [Not Recovered/Not Resolved]
